FAERS Safety Report 4391040-X (Version None)
Quarter: 2004Q3

REPORT INFORMATION
  Report Type: 
  Country: None (occurrence: None)
  Receive Date: 20040702
  Receipt Date: 20040702
  Transmission Date: 20050211
  Serious: Yes (Other)
  Sender: FDA-Public Use
  Company Number: None

PATIENT
  Age: 41 Year

DRUGS (3)
  1. CEFTRIAXONE [Suspect]
  2. AZITHROMYCIN [Suspect]
  3. FLAGYL [Suspect]

REACTIONS (1)
  - UNEVALUABLE EVENT [None]
